FAERS Safety Report 8284974-7 (Version None)
Quarter: 2012Q2

REPORT INFORMATION
  Report Type: 
  Country: None (occurrence: None)
  Receive Date: 20120413
  Receipt Date: 20111102
  Transmission Date: 20120825
  Serious: No
  Sender: FDA-Public Use
  Company Number: US-ASTRAZENECA-2011SE59003

PATIENT
  Age: 87 Year
  Sex: Male
  Weight: 70.3 kg

DRUGS (6)
  1. LIPITOR [Concomitant]
     Indication: BLOOD CHOLESTEROL ABNORMAL
  2. NEXIUM [Suspect]
     Route: 048
  3. NEXIUM [Suspect]
     Indication: DYSGEUSIA
     Route: 048
     Dates: start: 20110920
  4. NEXIUM [Suspect]
     Indication: GASTROOESOPHAGEAL REFLUX DISEASE
     Route: 048
     Dates: start: 20110920
  5. NEXIUM [Suspect]
     Route: 048
  6. CUMIDAN [Concomitant]
     Indication: ANTICOAGULANT THERAPY

REACTIONS (3)
  - OFF LABEL USE [None]
  - DYSGEUSIA [None]
  - DRUG INEFFECTIVE FOR UNAPPROVED INDICATION [None]
